FAERS Safety Report 9289547 (Version 2)
Quarter: 2013Q4

REPORT INFORMATION
  Report Type: Spontaneous
  Country: US (occurrence: US)
  Receive Date: 20130515
  Receipt Date: 20131025
  Transmission Date: 20140711
  Serious: Yes (Death, Hospitalization)
  Sender: FDA-Public Use
  Company Number: US-B.I. PHARMACEUTICALS,INC./RIDGEFIELD-2013-BI-13382BP

PATIENT
  Age: 71 Year
  Sex: Female
  Weight: 136.08 kg

DRUGS (18)
  1. PRADAXA [Suspect]
     Indication: ANTICOAGULANT THERAPY
     Dates: start: 20110408, end: 20120402
  2. PRADAXA [Suspect]
     Indication: THROMBOSIS PROPHYLAXIS
  3. HYDROCODONE [Concomitant]
  4. OXYBUTYNIN [Concomitant]
  5. NIASPAN [Concomitant]
  6. CALTRATE [Concomitant]
     Dates: start: 20110801, end: 20120402
  7. ENTOCORT [Concomitant]
     Dates: start: 20080702, end: 20120402
  8. METOPROLOL [Concomitant]
     Dates: start: 20050501, end: 20120402
  9. LASIX [Concomitant]
  10. VITAMIN D [Concomitant]
  11. FOLBIC [Concomitant]
  12. PENTASA [Concomitant]
     Dates: start: 20070601, end: 20120402
  13. SODIUM CHLORIDE [Concomitant]
  14. ALENDRONATE [Concomitant]
  15. LOVAZA [Concomitant]
     Dates: start: 20060501, end: 20120402
  16. ZETIA [Concomitant]
     Dates: start: 20100701, end: 20120402
  17. LATANOPROST [Concomitant]
  18. POTASSIUM CHLORIDE [Concomitant]

REACTIONS (7)
  - Haemorrhagic anaemia [Fatal]
  - Cardiac arrest [Fatal]
  - Gastrointestinal haemorrhage [Fatal]
  - Asthenia [Fatal]
  - Fall [Unknown]
  - Joint injury [Unknown]
  - Haematoma [Unknown]
